FAERS Safety Report 9484112 (Version 1)
Quarter: 2013Q3

REPORT INFORMATION
  Report Type: Spontaneous
  Country: JP (occurrence: JP)
  Receive Date: 20130828
  Receipt Date: 20130828
  Transmission Date: 20140515
  Serious: Yes (Life-Threatening, Hospitalization, Other)
  Sender: FDA-Public Use
  Company Number: JP-ROXANE LABORATORIES, INC.-2013-RO-01435RO

PATIENT
  Age: 66 Year
  Sex: Male

DRUGS (4)
  1. AMLODIPINE [Suspect]
     Indication: PRINZMETAL ANGINA
     Dosage: 2.5 MG
     Route: 048
  2. NICORANDIL [Suspect]
     Indication: PRINZMETAL ANGINA
     Dosage: 15 MG
     Route: 048
  3. NICORANDIL [Suspect]
     Route: 042
  4. NITROGLYCERINE [Suspect]
     Indication: PRINZMETAL ANGINA
     Dosage: 25 MG
     Route: 062

REACTIONS (7)
  - Cardio-respiratory arrest [Recovered/Resolved with Sequelae]
  - Arteriospasm coronary [Recovered/Resolved]
  - Ventricular fibrillation [Recovered/Resolved]
  - Renal impairment [Unknown]
  - Neurological decompensation [Unknown]
  - Gastric cancer [Unknown]
  - Anastomotic leak [Unknown]
